FAERS Safety Report 7730294-6 (Version None)
Quarter: 2011Q3

REPORT INFORMATION
  Report Type: 
  Country: None (occurrence: None)
  Receive Date: 20110906
  Receipt Date: 20110823
  Transmission Date: 20111222
  Serious: Yes (Death, Hospitalization, Other)
  Sender: FDA-Public Use
  Company Number: US-ELI_LILLY_AND_COMPANY-US201108007140

PATIENT
  Age: 65 Year
  Sex: Female

DRUGS (1)
  1. EVISTA [Suspect]

REACTIONS (5)
  - CHEST PAIN [None]
  - DEATH [None]
  - DEEP VEIN THROMBOSIS [None]
  - DYSPNOEA [None]
  - LUNG NEOPLASM MALIGNANT [None]
